FAERS Safety Report 11200855 (Version 4)
Quarter: 2016Q1

REPORT INFORMATION
  Report Type: Spontaneous
  Country: CA (occurrence: CA)
  Receive Date: 20150618
  Receipt Date: 20160127
  Transmission Date: 20160525
  Serious: Yes (Hospitalization, Other)
  Sender: FDA-Public Use
  Company Number: CA-009507513-1506CAN004974

PATIENT
  Sex: Male

DRUGS (3)
  1. TEMODAL [Suspect]
     Active Substance: TEMOZOLOMIDE
     Indication: OLIGOASTROCYTOMA
     Dosage: 225 MG, QD X 5 DAYS CYCLE PER MONTH
     Route: 048
     Dates: start: 20141217, end: 2015
  2. TEMODAL [Suspect]
     Active Substance: TEMOZOLOMIDE
     Indication: GLIOBLASTOMA MULTIFORME
     Dosage: 225 MG, QD X 5 DAYS CYCLE PER MONTH
     Route: 048
     Dates: start: 201505, end: 20150920
  3. TEMODAL [Suspect]
     Active Substance: TEMOZOLOMIDE
     Dosage: 350 MG, QD ON DAYS 10-14 OF CYCLES
     Route: 048
     Dates: start: 20150921

REACTIONS (7)
  - Product taste abnormal [Unknown]
  - Drug dose omission [Unknown]
  - Malignant neoplasm progression [Unknown]
  - Cerebral haemorrhage [Unknown]
  - Anal fistula [Unknown]
  - Rectal abscess [Unknown]
  - Neoplasm recurrence [Not Recovered/Not Resolved]

NARRATIVE: CASE EVENT DATE: 2015
